FAERS Safety Report 10914504 (Version 1)
Quarter: 2015Q1

REPORT INFORMATION
  Report Type: Spontaneous
  Country: US (occurrence: US)
  Receive Date: 20150313
  Receipt Date: 20150313
  Transmission Date: 20150721
  Serious: No
  Sender: FDA-Public Use
  Company Number: US-GLAXOSMITHKLINE-US2015032483

PATIENT
  Age: 49 Year
  Sex: Female

DRUGS (3)
  1. CLARITIN (NOS) [Concomitant]
  2. ADVIL [Concomitant]
     Active Substance: IBUPROFEN
  3. FLONASE [Suspect]
     Active Substance: FLUTICASONE PROPIONATE
     Indication: HYPERSENSITIVITY
     Dosage: UNK
     Route: 045
     Dates: start: 20150309, end: 20150310

REACTIONS (1)
  - Vertigo [Unknown]

NARRATIVE: CASE EVENT DATE: 20150311
